FAERS Safety Report 9188804 (Version 1)
Quarter: 2013Q1

REPORT INFORMATION
  Report Type: Report from Study
  Country: JP (occurrence: JP)
  Receive Date: 20130326
  Receipt Date: 20130326
  Transmission Date: 20140127
  Serious: Yes (Other)
  Sender: FDA-Public Use
  Company Number: JP-OTSUKA-JP-2012-15809

PATIENT
  Age: 61 Year
  Sex: Male
  Weight: 58 kg

DRUGS (4)
  1. SAMSCA [Suspect]
     Indication: FLUID RETENTION
     Dosage: 15 MG MILLIGRAM(S), QAM
     Route: 048
     Dates: start: 20120427
  2. FUROSEMIDE [Suspect]
     Indication: CARDIAC FAILURE
     Dosage: 60 MG MILLIGRAM(S), DAILY DOSE
     Route: 042
     Dates: start: 20120324, end: 20120502
  3. SPIRONOLACTONE [Concomitant]
     Indication: CARDIAC FAILURE
     Dosage: 25 MG MILLIGRAM(S), DAILY DOSE
     Route: 048
     Dates: start: 20111102
  4. HANP [Concomitant]
     Indication: CARDIAC FAILURE
     Dosage: 0.038 UG/KG/MIN, DAILY DOSE
     Route: 042
     Dates: start: 20120324

REACTIONS (1)
  - Hypotension [Recovered/Resolved]
